FAERS Safety Report 4377647-4 (Version None)
Quarter: 2004Q2

REPORT INFORMATION
  Report Type: 
  Country: None (occurrence: None)
  Receive Date: 20040602
  Receipt Date: 20031001
  Transmission Date: 20050107
  Serious: Yes (Life-Threatening)
  Sender: FDA-Public Use
  Company Number: US-JNJFOC-20030902266

PATIENT
  Age: 61 Year
  Sex: Female
  Weight: 93.441 kg

DRUGS (3)
  1. PROPULSID [Suspect]
     Dosage: ORAL; 10 MG, 4 IN 1 DAY, ORAL
     Route: 048
     Dates: start: 19970827
  2. PROPULSID [Suspect]
     Dosage: ORAL; 10 MG, 4 IN 1 DAY, ORAL
     Route: 048
     Dates: start: 19990602
  3. PRILOSEC [Concomitant]

REACTIONS (5)
  - CHEST PAIN [None]
  - CONDITION AGGRAVATED [None]
  - CORONARY ARTERY DISEASE [None]
  - ELECTROCARDIOGRAM QT PROLONGED [None]
  - EPIGASTRIC DISCOMFORT [None]
